APPROVED DRUG PRODUCT: LEVETIRACETAM
Active Ingredient: LEVETIRACETAM
Strength: 100MG/ML
Dosage Form/Route: SOLUTION;ORAL
Application: A078774 | Product #001 | TE Code: AA
Applicant: TARO PHARMACEUTICAL INDUSTRIES LTD
Approved: Feb 10, 2009 | RLD: No | RS: No | Type: RX